APPROVED DRUG PRODUCT: CLARITHROMYCIN
Active Ingredient: CLARITHROMYCIN
Strength: 250MG
Dosage Form/Route: TABLET;ORAL
Application: A203584 | Product #001 | TE Code: AB
Applicant: HEC PHARM USA INC
Approved: Sep 28, 2015 | RLD: No | RS: No | Type: RX